FAERS Safety Report 7190267-1 (Version None)
Quarter: 2010Q4

REPORT INFORMATION
  Report Type: 
  Country: None (occurrence: None)
  Receive Date: 20101223
  Receipt Date: 20101217
  Transmission Date: 20110411
  Serious: Yes (Other)
  Sender: FDA-Public Use
  Company Number: BR-PFIZER INC-2010175287

PATIENT
  Age: 57 Year
  Sex: Female
  Weight: 50 kg

DRUGS (7)
  1. XALATAN [Suspect]
     Indication: INTRAOCULAR PRESSURE INCREASED
     Dosage: 1 DROP IN EACH EYE
     Route: 047
     Dates: start: 20101001
  2. XALATAN [Suspect]
     Dosage: UNK
     Route: 047
     Dates: start: 20100901
  3. BETAGAN [Suspect]
  4. ALPHAGAN [Suspect]
  5. INSULIN GLULISINE [Concomitant]
     Indication: TYPE 1 DIABETES MELLITUS
     Dosage: UNK
  6. CAPTOPRIL [Concomitant]
     Indication: HYPERTENSION
     Dosage: UNK
     Dates: start: 20080101
  7. RIVOTRIL [Concomitant]
     Indication: FEELING OF RELAXATION
     Dosage: UNK
     Dates: start: 20100901

REACTIONS (6)
  - DRUG INEFFECTIVE [None]
  - EYE DISORDER [None]
  - EYE IRRITATION [None]
  - EYELID OEDEMA [None]
  - MYDRIASIS [None]
  - SENSATION OF FOREIGN BODY [None]
